FAERS Safety Report 20366551 (Version 2)
Quarter: 2023Q1

REPORT INFORMATION
  Report Type: Report from Study
  Country: US (occurrence: US)
  Receive Date: 20220123
  Receipt Date: 20230204
  Transmission Date: 20230418
  Serious: No
  Sender: FDA-Public Use
  Company Number: US-ACORDA-ACO_169342_2021

PATIENT
  Age: 32 Year
  Sex: Female

DRUGS (1)
  1. AMPYRA [Suspect]
     Active Substance: DALFAMPRIDINE
     Indication: Product used for unknown indication
     Dosage: 10 MILLIGRAM, Q 12 HRS
     Route: 065
     Dates: start: 20181213

REACTIONS (5)
  - Abdominal discomfort [Unknown]
  - Pruritus [Unknown]
  - Urticaria [Unknown]
  - Scratch [Unknown]
  - Medication error [Unknown]

NARRATIVE: CASE EVENT DATE: 20210709
